FAERS Safety Report 8611428-8 (Version None)
Quarter: 2012Q3

REPORT INFORMATION
  Report Type: 
  Country: None (occurrence: None)
  Receive Date: 20120805
  Receipt Date: 20120619
  Transmission Date: 20120928
  Serious: Yes (Life-Threatening, Other)
  Sender: FDA-Public Use
  Company Number: 2012032703

PATIENT
  Sex: Female

DRUGS (1)
  1. MONOCLATE-P [Suspect]
     Indication: VON WILLEBRAND'S DISEASE

REACTIONS (6)
  - ANAPHYLACTIC REACTION [None]
  - HYPOTENSION [None]
  - OFF LABEL USE [None]
  - TONGUE OEDEMA [None]
  - VON WILLEBRAND'S FACTOR ANTIBODY POSITIVE [None]
  - BRONCHOSPASM [None]
